FAERS Safety Report 6422461-9 (Version None)
Quarter: 2009Q4

REPORT INFORMATION
  Report Type: 
  Country: None (occurrence: None)
  Receive Date: 20091030
  Receipt Date: 20091020
  Transmission Date: 20100525
  Serious: Yes (Other)
  Sender: FDA-Public Use
  Company Number: SE-AMGEN-US340547

PATIENT
  Sex: Female

DRUGS (5)
  1. ENBREL [Suspect]
     Indication: PSORIASIS
     Route: 058
     Dates: start: 20080301, end: 20090308
  2. PYRIDOXIN [Concomitant]
     Indication: TUBERCULIN TEST POSITIVE
     Dosage: UNKNOWN
     Dates: start: 20060301
  3. TIBINIDE [Concomitant]
     Indication: TUBERCULIN TEST POSITIVE
     Dosage: UNKNOWN
     Dates: start: 20060301
  4. METHOTREXATE [Concomitant]
     Indication: PSORIASIS
     Dosage: UNKNOWN
     Dates: start: 20050101
  5. FOLACIN [Concomitant]

REACTIONS (2)
  - MULTIPLE SCLEROSIS [None]
  - OPTIC NEURITIS [None]
